FAERS Safety Report 4309495-5 (Version None)
Quarter: 2004Q1

REPORT INFORMATION
  Report Type: 
  Country: None (occurrence: None)
  Receive Date: 20040227
  Receipt Date: 20040108
  Transmission Date: 20041129
  Serious: Yes (Other)
  Sender: FDA-Public Use
  Company Number: PHEH2004US00659

PATIENT
  Age: 66 Year
  Sex: Female
  Weight: 74 kg

DRUGS (4)
  1. ZOMETA [Suspect]
     Indication: MULTIPLE MYELOMA
     Dosage: 4 MG, QMO
     Route: 042
     Dates: start: 20031219, end: 20031219
  2. INSULIN [Concomitant]
     Dosage: UNK, PRN
     Route: 058
  3. FLOVENT [Concomitant]
     Dosage: 110 MG, BID
  4. ALTACE [Concomitant]
     Dosage: 10 MG, QD
     Route: 048

REACTIONS (5)
  - CONJUNCTIVITIS [None]
  - EYE PAIN [None]
  - EYE REDNESS [None]
  - IRITIS [None]
  - PHOTOPHOBIA [None]
